FAERS Safety Report 14294028 (Version 1)
Quarter: 2017Q4

REPORT INFORMATION
  Report Type: Spontaneous
  Country: IT (occurrence: IT)
  Receive Date: 20171217
  Receipt Date: 20171217
  Transmission Date: 20180321
  Serious: Yes (Hospitalization)
  Sender: FDA-Public Use
  Company Number: IT-CIPLA LTD.-2017IT24295

PATIENT

DRUGS (4)
  1. FLURAZEPAM [Suspect]
     Active Substance: FLURAZEPAM\FLURAZEPAM HYDROCHLORIDE
     Indication: DEPRESSION
     Dosage: 30 MG, PER DAY
     Route: 065
  2. TRAZODONE HYDROCHLORIDE. [Suspect]
     Active Substance: TRAZODONE HYDROCHLORIDE
     Indication: DEPRESSION
     Dosage: 75 MG, PER DAY
     Route: 065
  3. ALPRAZOLAM. [Suspect]
     Active Substance: ALPRAZOLAM
     Indication: DEPRESSION
     Dosage: 2 MG, PER DAY
     Route: 065
  4. SERTRALINE [Suspect]
     Active Substance: SERTRALINE HYDROCHLORIDE
     Indication: DEPRESSION
     Dosage: 300 MG, PER DAY
     Route: 065

REACTIONS (6)
  - Drug ineffective [Recovered/Resolved]
  - Delusion [Recovered/Resolved]
  - Suicide attempt [Recovered/Resolved]
  - Hallucination, auditory [Recovered/Resolved]
  - Mood altered [Recovered/Resolved]
  - Condition aggravated [Recovered/Resolved]
